FAERS Safety Report 20129717 (Version 1)
Quarter: 2021Q4

REPORT INFORMATION
  Report Type: Other
  Country: US (occurrence: None)
  Receive Date: 20211130
  Receipt Date: 20211130
  Transmission Date: 20220303
  Serious: Yes (Hospitalization, Other)
  Sender: FDA-Public Use
  Company Number: US-ROCHE-2961920

PATIENT
  Age: 43 Year
  Sex: Female
  Weight: 49.940 kg

DRUGS (13)
  1. OCREVUS [Suspect]
     Active Substance: OCRELIZUMAB
     Indication: Progressive multiple sclerosis
     Dosage: AS AN INFUSION
     Route: 065
     Dates: start: 20210901
  2. BACLOFEN [Concomitant]
     Active Substance: BACLOFEN
     Dosage: STARTED ABOUT 8 YEARS AGO ;ONGOING: YES
     Route: 048
  3. OXYBUTYNIN [Concomitant]
     Active Substance: OXYBUTYNIN
     Dosage: STARTED ABOUT 8 YEARS AGO ;ONGOING: YES
     Route: 048
  4. ACETAMINOPHEN\HYDROCODONE [Concomitant]
     Active Substance: ACETAMINOPHEN\HYDROCODONE
     Dosage: STARTED ABOUT 8 YEARS AGO  1 TABLET 5 TIMES PER DAY AS NEEDED ;ONGOING: YES
     Route: 048
  5. METHADONE [Concomitant]
     Active Substance: METHADONE HYDROCHLORIDE
     Dosage: STARTED 4 MONTHS AGO ;ONGOING: YES
     Route: 048
  6. TIZANIDINE [Concomitant]
     Active Substance: TIZANIDINE
     Dosage: STARTED ABOUT  18 MONTHS AGO AS NEEDED ;ONGOING: YES
     Route: 048
  7. AMITRIPTYLINE [Concomitant]
     Active Substance: AMITRIPTYLINE
     Indication: Initial insomnia
     Dosage: STARTED ABOUT 1 YEAR AGO    TAKES AT BEDTIME ;ONGOING: YES
     Route: 048
  8. AMITRIPTYLINE [Concomitant]
     Active Substance: AMITRIPTYLINE
     Indication: Insomnia
  9. TEMAZEPAM [Concomitant]
     Active Substance: TEMAZEPAM
     Dosage: STARTED ABOUT 1 YEAR AGO   AT BEDTIME   AS NEEDED ;ONGOING: YES
     Route: 048
  10. IMITREX [Concomitant]
     Active Substance: SUMATRIPTAN SUCCINATE
     Dosage: STARTED ABOUT 8 YEARS AGO   AS NEEDED              MAX DOSE IS ONCE A WEEK ;ONGOING: YES
     Route: 048
  11. COVID-19 VACCINE NOS [Concomitant]
     Active Substance: COVID-19 VACCINE NOS
     Dosage: 2 DOSES ;ONGOING: NO
     Route: 030
     Dates: start: 202103, end: 202104
  12. ERYTHROMYCIN [Concomitant]
     Active Substance: ERYTHROMYCIN
  13. MACROBID [Concomitant]
     Active Substance: NITROFURANTOIN\NITROFURANTOIN MONOHYDRATE

REACTIONS (2)
  - Periorbital cellulitis [Recovered/Resolved]
  - Cystitis [Not Recovered/Not Resolved]

NARRATIVE: CASE EVENT DATE: 20211101
